FAERS Safety Report 9352208 (Version 3)
Quarter: 2014Q2

REPORT INFORMATION
  Report Type: Spontaneous
  Country: US (occurrence: US)
  Receive Date: 20130617
  Receipt Date: 20140619
  Transmission Date: 20141212
  Serious: Yes (Hospitalization)
  Sender: FDA-Public Use
  Company Number: US-009507513-1306USA006674

PATIENT
  Sex: Female

DRUGS (1)
  1. NUVARING [Suspect]
     Indication: CONTRACEPTION
     Dosage: UNK
     Route: 067
     Dates: start: 201003, end: 2011

REACTIONS (12)
  - Deep vein thrombosis [Unknown]
  - Thyroiditis [Unknown]
  - Hypokalaemia [Unknown]
  - Dysmenorrhoea [Unknown]
  - Emotional disorder [Unknown]
  - Dyspnoea [Unknown]
  - Stress [Unknown]
  - Goitre [Unknown]
  - Musculoskeletal pain [Unknown]
  - Dizziness [Recovered/Resolved]
  - Dizziness [Unknown]
  - Diarrhoea [Unknown]
